FAERS Safety Report 6677963-7 (Version None)
Quarter: 2010Q2

REPORT INFORMATION
  Report Type: 
  Country: None (occurrence: None)
  Receive Date: 20100412
  Receipt Date: 20100401
  Transmission Date: 20101027
  Serious: Yes (Hospitalization, Other)
  Sender: FDA-Public Use
  Company Number: JP-WATSON-2010-03222

PATIENT
  Sex: Male

DRUGS (7)
  1. RAPAFLO [Suspect]
     Indication: BLADDER OBSTRUCTION
     Dosage: 4 MG, BID
     Route: 048
     Dates: start: 20080306, end: 20100215
  2. LOSARTAN POTASSIUM (PREMINENT) [Suspect]
     Indication: HYPERTENSION
     Dosage: 1  DOSE FORM DAILY
     Route: 048
     Dates: end: 20080501
  3. ADALAT CC [Suspect]
     Indication: HYPERTENSION
     Dosage: 20 MG, DAILY
     Route: 048
     Dates: end: 20091201
  4. ASPIRIN [Concomitant]
     Indication: ANGINA PECTORIS
     Dosage: 100 MG, DAILY
     Route: 048
     Dates: start: 20070928
  5. ETHYL ICOSAPENTATE [Concomitant]
     Indication: ARTERIOSCLEROSIS OBLITERANS
     Dosage: 1800 MG, DAILY
     Route: 048
     Dates: start: 20050301
  6. NEUROVITAN                         /00280501/ [Concomitant]
     Indication: SCIATICA
     Dosage: 2 DF, UNK
     Route: 048
     Dates: start: 20050706
  7. GASLON N [Concomitant]
     Indication: GASTRITIS
     Dosage: 1 DF, UNK
     Route: 048
     Dates: start: 20070928

REACTIONS (2)
  - ATRIAL FLUTTER [None]
  - BLOOD PRESSURE DECREASED [None]
